FAERS Safety Report 8985684 (Version 1)
Quarter: 2012Q4

REPORT INFORMATION
  Report Type: Report from Study
  Country: CA (occurrence: CA)
  Receive Date: 20121226
  Receipt Date: 20121226
  Transmission Date: 20130627
  Serious: Yes (Hospitalization)
  Sender: FDA-Public Use
  Company Number: CA-JNJFOC-20121209621

PATIENT
  Age: 33 Year
  Sex: Male
  Weight: 76 kg

DRUGS (6)
  1. REMICADE [Suspect]
     Indication: CROHN^S DISEASE
     Route: 042
  2. STOOL SOFTENER [Concomitant]
     Route: 065
  3. FERROUS GLUCONATE [Concomitant]
     Route: 065
  4. LOSEC [Concomitant]
     Route: 065
  5. VITAMIN D [Concomitant]
     Dosage: dose is 1500 (unspecified units)
     Route: 065
  6. VITAMIN B12 [Concomitant]
     Route: 065

REACTIONS (4)
  - Abdominal pain [Unknown]
  - Nausea [Unknown]
  - Vomiting [Unknown]
  - Anal dilation procedure [Unknown]
